FAERS Safety Report 7040535-9 (Version None)
Quarter: 2010Q4

REPORT INFORMATION
  Report Type: 
  Country: None (occurrence: None)
  Receive Date: 20101008
  Receipt Date: 20101008
  Transmission Date: 20110411
  Serious: Yes (Death)
  Sender: FDA-Public Use
  Company Number: None

PATIENT
  Age: 57 Year
  Sex: Female

DRUGS (1)
  1. REGADENOSON 0.4 MG/5ML ASTELLAS [Suspect]
     Indication: CARDIAC STRESS TEST
     Dosage: 0.4MG IN 5ML OVER 10 SECONDS IV
     Route: 042

REACTIONS (2)
  - CARDIO-RESPIRATORY ARREST [None]
  - NAUSEA [None]
